FAERS Safety Report 21625434 (Version 1)
Quarter: 2022Q4

REPORT INFORMATION
  Report Type: Other
  Country: None (occurrence: FR)
  Receive Date: 20221122
  Receipt Date: 20221122
  Transmission Date: 20230113
  Serious: Yes (Death, Hospitalization, Other)
  Sender: FDA-Public Use
  Company Number: FR-Ajanta Pharma USA Inc.-2135135

PATIENT
  Age: 69 Year
  Sex: Male

DRUGS (1)
  1. METFORMIN HYDROCHLORIDE [Suspect]
     Active Substance: METFORMIN HYDROCHLORIDE
     Indication: Type 2 diabetes mellitus
     Dates: end: 2021

REACTIONS (3)
  - Hepatic failure [Fatal]
  - Toxicity to various agents [Not Recovered/Not Resolved]
  - Lactic acidosis [Not Recovered/Not Resolved]

NARRATIVE: CASE EVENT DATE: 20210101
